FAERS Safety Report 15436976 (Version 2)
Quarter: 2019Q3

REPORT INFORMATION
  Report Type: Spontaneous
  Country: US (occurrence: US)
  Receive Date: 20180927
  Receipt Date: 20190930
  Transmission Date: 20191004
  Serious: No
  Sender: FDA-Public Use
  Company Number: US-CLOVIS ONCOLOGY-CLO-2018-000977

PATIENT
  Sex: Female

DRUGS (5)
  1. RUBRACA [Suspect]
     Active Substance: RUCAPARIB CAMSYLATE
     Indication: CARBOHYDRATE ANTIGEN 125 INCREASED
     Dosage: 300 MG, BID
     Dates: start: 201706, end: 2017
  2. RUBRACA [Suspect]
     Active Substance: RUCAPARIB CAMSYLATE
     Indication: OVARIAN CANCER
  3. RUBRACA [Suspect]
     Active Substance: RUCAPARIB CAMSYLATE
     Indication: OVARIAN CANCER
  4. RUBRACA [Suspect]
     Active Substance: RUCAPARIB CAMSYLATE
     Indication: OVARIAN CANCER
     Dosage: 600 MG, BID
     Dates: start: 2017, end: 20190831
  5. RUBRACA [Suspect]
     Active Substance: RUCAPARIB CAMSYLATE
     Indication: BRCA2 GENE MUTATION

REACTIONS (3)
  - Carbohydrate antigen 125 increased [Not Recovered/Not Resolved]
  - Product dose omission [Unknown]
  - Spleen disorder [Unknown]

NARRATIVE: CASE EVENT DATE: 2018
